FAERS Safety Report 17369846 (Version 19)
Quarter: 2025Q3

REPORT INFORMATION
  Report Type: Spontaneous
  Country: US (occurrence: US)
  Receive Date: 20200205
  Receipt Date: 20250730
  Transmission Date: 20251020
  Serious: No
  Sender: DAIICHI
  Company Number: US-DSJP-DSU-2020-103633

PATIENT
  Age: 32 Year
  Sex: Male

DRUGS (4)
  1. TURALIO [Suspect]
     Active Substance: PEXIDARTINIB HYDROCHLORIDE
     Indication: Product used for unknown indication
     Dosage: 400 MG, BID
     Route: 048
     Dates: start: 20200113
  2. TURALIO [Suspect]
     Active Substance: PEXIDARTINIB HYDROCHLORIDE
     Dosage: 400 MG, BID
     Route: 048
     Dates: start: 20200113
  3. TURALIO [Suspect]
     Active Substance: PEXIDARTINIB HYDROCHLORIDE
     Dosage: 400 MG, BID
     Route: 048
     Dates: start: 20200113, end: 20211201
  4. TURALIO [Suspect]
     Active Substance: PEXIDARTINIB HYDROCHLORIDE
     Dosage: 250 MG, BID
     Route: 048
     Dates: start: 20200113

REACTIONS (16)
  - Sensitive skin [Recovered/Resolved]
  - Adverse drug reaction [Unknown]
  - Incision site vesicles [Recovered/Resolved]
  - Skin texture abnormal [Unknown]
  - Erythema [Unknown]
  - Incision site impaired healing [Unknown]
  - Sensitive skin [Unknown]
  - Photosensitivity reaction [Recovered/Resolved]
  - Rash [Recovered/Resolved]
  - Periorbital swelling [Unknown]
  - Malaise [Recovered/Resolved]
  - Hair colour changes [Unknown]
  - Hair colour changes [Recovered/Resolved]
  - Therapeutic response decreased [Unknown]
  - Product dose omission issue [Recovered/Resolved]
  - Product dose omission in error [Recovered/Resolved]

NARRATIVE: CASE EVENT DATE: 20200101
